FAERS Safety Report 8270097-X (Version None)
Quarter: 2012Q2

REPORT INFORMATION
  Report Type: 
  Country: None (occurrence: None)
  Receive Date: 20120410
  Receipt Date: 20120328
  Transmission Date: 20120825
  Serious: Yes (Death)
  Sender: FDA-Public Use
  Company Number: PHHY2012GB028999

PATIENT

DRUGS (13)
  1. ANTIEMETICS [Concomitant]
     Dosage: UNK UKN, UNK
  2. GEMCITABINE [Suspect]
     Dosage: 800 MG/M2, UNK
     Route: 042
  3. OXALIPLATIN [Suspect]
     Dosage: 85 MG/M2
     Route: 042
  4. GEMCITABINE [Suspect]
     Dosage: 600 MG/M2, UNK
     Route: 042
  5. GEMCITABINE [Suspect]
     Dosage: 1000 MG/M2, UNK
     Route: 042
  6. OXALIPLATIN [Suspect]
     Indication: ADENOCARCINOMA PANCREAS
     Dosage: 85 MG/M2 OVER 2 H ON DAY 2 OF A TWO WEEKLY CYCLE
     Route: 042
  7. OXALIPLATIN [Suspect]
     Dosage: 100 MG/M2
     Route: 042
  8. IMATINIB MESYLATE [Suspect]
     Indication: ADENOCARCINOMA PANCREAS
     Dosage: FIXED DOSE OF 400 MG/DAY, WAS GIVEN ORALLY ON AN INTERMITTENT
     Route: 048
  9. OXALIPLATIN [Suspect]
     Dosage: 85 MG/M2
     Route: 042
  10. GEMCITABINE [Suspect]
     Dosage: 400 MG/M2
     Route: 042
  11. OXALIPLATIN [Suspect]
     Dosage: 85 MG/M2
     Route: 042
  12. GEMCITABINE [Suspect]
     Indication: ADENOCARCINOMA PANCREAS
     Dosage: 200 MG/M2 OVER 30 MIN ON DAY 1
     Route: 042
  13. OXALIPLATIN [Suspect]
     Dosage: 85 MG/M2
     Route: 042

REACTIONS (3)
  - THROMBOSIS [None]
  - GASTROINTESTINAL HAEMORRHAGE [None]
  - RENAL FAILURE [None]
